FAERS Safety Report 9747608 (Version 1)
Quarter: 2013Q4

REPORT INFORMATION
  Report Type: Spontaneous
  Country: US (occurrence: None)
  Receive Date: 20131211
  Receipt Date: 20131211
  Transmission Date: 20140711
  Serious: Yes (Hospitalization, Other)
  Sender: FDA-Public Use
  Company Number: None

PATIENT
  Age: 55 Year
  Sex: Female
  Weight: 230 kg

DRUGS (3)
  1. MINIVELLE [Suspect]
     Indication: HOT FLUSH
     Dosage: 0.5 MG, 2XWEEKLY, APPLIED TO A SURFACE, USUALLY THE SKIN
     Dates: start: 20131118, end: 20131203
  2. MINIVELLE [Suspect]
     Indication: MENOPAUSAL SYMPTOMS
     Dosage: 0.5 MG, 2XWEEKLY, APPLIED TO A SURFACE, USUALLY THE SKIN
     Dates: start: 20131118, end: 20131203
  3. VIVELLE DOT [Suspect]
     Dosage: 0.5 MG, 2X WEEKLY, APPLIED TO A SURFACE, USUALLY THE SKIN

REACTIONS (4)
  - Product substitution issue [None]
  - Product quality issue [None]
  - Gastrointestinal haemorrhage [None]
  - Portal vein thrombosis [None]
